FAERS Safety Report 7923289-0 (Version None)
Quarter: 2011Q4

REPORT INFORMATION
  Report Type: 
  Country: None (occurrence: None)
  Receive Date: 20111117
  Receipt Date: 20110131
  Transmission Date: 20120403
  Serious: No
  Sender: FDA-Public Use
  Company Number: US-AMGEN-USASP2011005886

PATIENT
  Age: 71 Year
  Sex: Male

DRUGS (1)
  1. ENBREL [Suspect]
     Indication: RHEUMATOID ARTHRITIS
     Dosage: 50 MG, QWK
     Dates: start: 20100115

REACTIONS (4)
  - RHEUMATOID ARTHRITIS [None]
  - GAIT DISTURBANCE [None]
  - THERAPEUTIC RESPONSE DECREASED [None]
  - JOINT EFFUSION [None]
